FAERS Safety Report 5925455-2 (Version None)
Quarter: 2008Q4

REPORT INFORMATION
  Report Type: 
  Country: None (occurrence: None)
  Receive Date: 20081021
  Receipt Date: 20081014
  Transmission Date: 20090506
  Serious: Yes (Life-Threatening, Disabling, Other)
  Sender: FDA-Public Use
  Company Number: US-MERCK-0809USA04172

PATIENT
  Sex: Male

DRUGS (5)
  1. ZOCOR [Suspect]
     Route: 065
     Dates: start: 20080301
  2. ALLOPURINOL [Concomitant]
     Indication: HYPERURICAEMIA
     Route: 048
  3. PLAVIX [Concomitant]
     Indication: ARTERIOSCLEROSIS
     Route: 048
  4. FERROUS SULFATE [Concomitant]
     Indication: ANAEMIA
     Route: 048
  5. ISOSORBIDE [Concomitant]
     Indication: ARTERIOSCLEROSIS CORONARY ARTERY
     Route: 048

REACTIONS (2)
  - ASTHENIA [None]
  - PANCYTOPENIA [None]
